FAERS Safety Report 25573958 (Version 1)
Quarter: 2025Q3

REPORT INFORMATION
  Report Type: Spontaneous
  Country: JP (occurrence: JP)
  Receive Date: 20250717
  Receipt Date: 20250717
  Transmission Date: 20251020
  Serious: Yes (Other)
  Sender: JOURNEY MEDICAL CORPORATION
  Company Number: JP-JOURNEY MEDICAL CORPORATION-2025JNY00117

PATIENT
  Age: 3 Decade
  Sex: Female

DRUGS (3)
  1. MINOCYCLINE [Suspect]
     Active Substance: MINOCYCLINE HYDROCHLORIDE
     Indication: Oropharyngeal pain
     Dosage: 200 MG, 1X/DAY
  2. MINOCYCLINE [Suspect]
     Active Substance: MINOCYCLINE HYDROCHLORIDE
     Indication: Cough
     Dosage: 100 MG, 1X/DAY
  3. HYDROXYCHLOROQUINE [Concomitant]
     Active Substance: HYDROXYCHLOROQUINE
     Indication: Systemic lupus erythematosus
     Dosage: 200 MG, 1X/DAY

REACTIONS (1)
  - Mania [Recovered/Resolved]
